FAERS Safety Report 17651622 (Version 1)
Quarter: 2020Q2

REPORT INFORMATION
  Report Type: Spontaneous
  Country: US (occurrence: US)
  Receive Date: 20200408
  Receipt Date: 20200408
  Transmission Date: 20200713
  Serious: No
  Sender: FDA-Public Use
  Company Number: None

PATIENT
  Age: 73 Year
  Sex: Male

DRUGS (1)
  1. LITHIUM (LITHIUM CARBONATE 300MG TAB) [Suspect]
     Active Substance: LITHIUM CARBONATE
     Indication: BIPOLAR I DISORDER
     Route: 048
     Dates: start: 19960101, end: 20200216

REACTIONS (3)
  - Delirium [None]
  - Hypothyroidism [None]
  - Dementia [None]

NARRATIVE: CASE EVENT DATE: 20200216
